FAERS Safety Report 9501142 (Version 1)
Quarter: 2013Q3

REPORT INFORMATION
  Report Type: Spontaneous
  Country: DE (occurrence: DE)
  Receive Date: 20130905
  Receipt Date: 20130905
  Transmission Date: 20140515
  Serious: Yes (Other)
  Sender: FDA-Public Use
  Company Number: DE-BAYER-2013-105982

PATIENT
  Sex: 0

DRUGS (2)
  1. NEXAVAR [Suspect]
     Indication: RENAL CANCER
     Dosage: GRADUALLY INCREASED
  2. NEXAVAR [Suspect]
     Indication: RENAL CANCER
     Dosage: FULL DOSAGE

REACTIONS (1)
  - Orthopnoea [None]
